FAERS Safety Report 25182408 (Version 1)
Quarter: 2025Q2

REPORT INFORMATION
  Report Type: Spontaneous
  Country: US (occurrence: US)
  Receive Date: 20250410
  Receipt Date: 20250410
  Transmission Date: 20250717
  Serious: No
  Sender: KINIKSA PHARMACEUTICALS
  Company Number: US-Kiniksa Pharmaceuticals Ltd.-2024KPU002253

PATIENT
  Age: 31 Year
  Sex: Female

DRUGS (1)
  1. ARCALYST [Suspect]
     Active Substance: RILONACEPT
     Indication: Pericarditis
     Route: 058
     Dates: start: 202406

REACTIONS (7)
  - Gastrointestinal haemorrhage [Recovering/Resolving]
  - Product dose omission issue [Unknown]
  - Product preparation error [Unknown]
  - Condition aggravated [Unknown]
  - Chest pain [Unknown]
  - Haematochezia [Recovering/Resolving]
  - Chest pain [Recovering/Resolving]

NARRATIVE: CASE EVENT DATE: 20240801
